FAERS Safety Report 4784898-3 (Version None)
Quarter: 2005Q3

REPORT INFORMATION
  Report Type: 
  Country: None (occurrence: None)
  Receive Date: 20050928
  Receipt Date: 20050915
  Transmission Date: 20060218
  Serious: Yes (Other)
  Sender: FDA-Public Use
  Company Number: 2005126286

PATIENT
  Sex: Female
  Weight: 104.3273 kg

DRUGS (9)
  1. CELEBREX [Suspect]
     Indication: ARTHRITIS
     Dosage: 400 MG (1 D), ORAL
     Route: 048
     Dates: start: 19990101
  2. BEXTRA [Suspect]
     Indication: ARTHRITIS
     Dosage: ORAL
     Route: 048
     Dates: start: 20010101
  3. RELAFEN [Suspect]
     Indication: ARTHRITIS
  4. MICARDIS [Concomitant]
  5. ALL OTHER THERAPEUTIC PRODUCTS (ALL OTHER THERAPEUTIC PRODUCTS) [Concomitant]
  6. FOSAMAX [Concomitant]
  7. CHONDROITIN/GLUCOSAMINE/METHYLSULFONYLMETHANE (CHONDROITIN, GLUCOSAMIN [Concomitant]
  8. MAGNESIUM CHELATE (MAGNESIUM CHELATE) [Concomitant]
  9. VITAMINS (VITAMINS) [Concomitant]

REACTIONS (7)
  - ABASIA [None]
  - CONDITION AGGRAVATED [None]
  - DEAFNESS [None]
  - DECREASED ACTIVITY [None]
  - DRUG EFFECT DECREASED [None]
  - DYSSTASIA [None]
  - PAIN [None]
